FAERS Safety Report 24074580 (Version 1)
Quarter: 2024Q3

REPORT INFORMATION
  Report Type: Spontaneous
  Country: US (occurrence: US)
  Receive Date: 20240710
  Receipt Date: 20240710
  Transmission Date: 20241017
  Serious: No
  Sender: PIERRE FABRE MEDICAMENT
  Company Number: US-PFM-2024-00325

PATIENT
  Age: 0 Year
  Sex: Female
  Weight: 6.1 kg

DRUGS (2)
  1. HEMANGEOL [Suspect]
     Active Substance: PROPRANOLOL HYDROCHLORIDE
     Indication: Haemangioma
     Dosage: 0.9 ML, BID (2/DAY)
     Route: 048
     Dates: start: 20240111, end: 202401
  2. HEMANGEOL [Suspect]
     Active Substance: PROPRANOLOL HYDROCHLORIDE
     Dosage: UNK
     Route: 065
     Dates: start: 202401

REACTIONS (2)
  - Psychomotor hyperactivity [Unknown]
  - Infantile spitting up [Unknown]

NARRATIVE: CASE EVENT DATE: 20240111
